FAERS Safety Report 10207720 (Version 1)
Quarter: 2014Q2

REPORT INFORMATION
  Report Type: Spontaneous
  Country: US (occurrence: US)
  Receive Date: 20140530
  Receipt Date: 20140530
  Transmission Date: 20141212
  Serious: No
  Sender: FDA-Public Use
  Company Number: US-009507513-1405USA010846

PATIENT
  Sex: Male

DRUGS (1)
  1. INVANZ [Suspect]
     Indication: LUNG ABSCESS
     Dosage: 1 G, QD
     Route: 042
     Dates: start: 201405

REACTIONS (1)
  - Liver function test abnormal [Not Recovered/Not Resolved]
